FAERS Safety Report 15251563 (Version 1)
Quarter: 2018Q3

REPORT INFORMATION
  Report Type: Spontaneous
  Country: CO (occurrence: CO)
  Receive Date: 20180807
  Receipt Date: 20180807
  Transmission Date: 20181010
  Serious: Yes (Other)
  Sender: FDA-Public Use
  Company Number: CO-PFIZER INC-2018313189

PATIENT
  Age: 55 Year
  Sex: Female

DRUGS (1)
  1. XELJANZ [Suspect]
     Active Substance: TOFACITINIB CITRATE
     Indication: RHEUMATOID ARTHRITIS
     Dosage: 5 MG, UNK
     Route: 048
     Dates: start: 201804, end: 20180730

REACTIONS (5)
  - Swelling [Not Recovered/Not Resolved]
  - Bone pain [Not Recovered/Not Resolved]
  - Deafness transitory [Not Recovered/Not Resolved]
  - Influenza [Not Recovered/Not Resolved]
  - Pain [Not Recovered/Not Resolved]

NARRATIVE: CASE EVENT DATE: 201804
